FAERS Safety Report 5258607-8 (Version None)
Quarter: 2007Q1

REPORT INFORMATION
  Report Type: 
  Country: None (occurrence: None)
  Receive Date: 20070305
  Receipt Date: 20070219
  Transmission Date: 20070707
  Serious: Yes (Hospitalization, Other)
  Sender: FDA-Public Use
  Company Number: 2006BI018419

PATIENT
  Age: 29 Year
  Sex: Female

DRUGS (2)
  1. AVONEX [Suspect]
     Indication: MULTIPLE SCLEROSIS
     Dosage: 30 UG; QW; IM
     Route: 030
     Dates: start: 20000901, end: 20030801
  2. AVONEX [Suspect]
     Dosage: 30 UG; QW; IM
     Route: 030
     Dates: start: 20030801

REACTIONS (6)
  - DEPRESSION [None]
  - ENCEPHALOPATHY [None]
  - HALLUCINATION, AUDITORY [None]
  - SUICIDE ATTEMPT [None]
  - UTERINE DISORDER [None]
  - UTERINE POLYP [None]
